FAERS Safety Report 17938395 (Version 1)
Quarter: 2020Q2

REPORT INFORMATION
  Report Type: Spontaneous
  Country: DE (occurrence: DE)
  Receive Date: 20200624
  Receipt Date: 20200624
  Transmission Date: 20200714
  Serious: Yes (Hospitalization)
  Sender: FDA-Public Use
  Company Number: DE-MYLANLABS-2020M1057306

PATIENT
  Age: 77 Year
  Sex: Female

DRUGS (13)
  1. BORTEZOMIB. [Suspect]
     Active Substance: BORTEZOMIB
     Indication: PRODUCT USED FOR UNKNOWN INDICATION
     Dosage: 1.3 MG/M2
     Route: 058
     Dates: end: 20200420
  2. ACETYLSALICYLSAEURE [Concomitant]
     Active Substance: ASPIRIN
     Dosage: 100 MG, 0-1-0-0
     Route: 048
  3. CALCIUMCARBONAT [Concomitant]
     Dosage: NK MG, 1-0-0-0
     Route: 048
  4. ACIC                               /00587301/ [Concomitant]
     Active Substance: ACYCLOVIR
     Dosage: 200 MG, 1-0-0-0
     Route: 048
  5. PANTOPRAZOL                        /01263201/ [Concomitant]
     Active Substance: PANTOPRAZOLE
     Dosage: 40 MG, 1-0-0-0
     Route: 048
  6. BISOPROLOL [Suspect]
     Active Substance: BISOPROLOL
     Indication: PRODUCT USED FOR UNKNOWN INDICATION
     Dosage: 2.5 MILLIGRAM, BID (2.5 MG, 1-0-1-0)
     Route: 048
  7. VIGANTOLETTEN [Concomitant]
     Active Substance: CHOLECALCIFEROL
     Dosage: 1000 IE, 1-0-0-0
     Route: 048
  8. ATORVASTATIN [Concomitant]
     Active Substance: ATORVASTATIN
     Dosage: 40 MG, 0-0-1-0
     Route: 048
  9. DEXAMETHASON                       /00016001/ [Suspect]
     Active Substance: DEXAMETHASONE
     Indication: PRODUCT USED FOR UNKNOWN INDICATION
     Dosage: 20 MILLIGRAM, QD (20 MG)
     Route: 048
     Dates: end: 20200422
  10. AMIODARON                          /00133101/ [Concomitant]
     Active Substance: AMIODARONE
     Dosage: 200 MG, 1-0-0-0
     Route: 048
  11. SPIRONOLACTON [Concomitant]
     Active Substance: SPIRONOLACTONE
     Dosage: 25 MG, 1-0-0-0
     Route: 048
  12. COTRIM FORTE [Concomitant]
     Active Substance: SULFAMETHOXAZOLE\TRIMETHOPRIM
     Dosage: 800|160 MG, MONTAG MITTWOCH FREITAG
     Route: 048
  13. LEVOTHYROXINE SODIUM. [Concomitant]
     Active Substance: LEVOTHYROXINE SODIUM
     Dosage: 25 ?G, 1-0-0-0
     Route: 048

REACTIONS (6)
  - General physical health deterioration [Unknown]
  - Oedema peripheral [Unknown]
  - Electrolyte imbalance [Unknown]
  - Hypotension [Unknown]
  - Pyrexia [Unknown]
  - Fatigue [Unknown]
